FAERS Safety Report 7323456-3 (Version None)
Quarter: 2011Q1

REPORT INFORMATION
  Report Type: 
  Country: None (occurrence: None)
  Receive Date: 20110301
  Receipt Date: 20110216
  Transmission Date: 20110831
  Serious: Yes (Hospitalization)
  Sender: FDA-Public Use
  Company Number: US-ACTELION-A-NJ2010-42952

PATIENT

DRUGS (1)
  1. TRACLEER [Suspect]
     Indication: PULMONARY ARTERIAL HYPERTENSION
     Dosage: UNK
     Route: 048
     Dates: start: 20100818

REACTIONS (7)
  - HORDEOLUM [None]
  - BRONCHITIS [None]
  - ASTHMA [None]
  - DYSPNOEA [None]
  - SINUSITIS [None]
  - CONDITION AGGRAVATED [None]
  - COUGH [None]
